FAERS Safety Report 11997972 (Version 1)
Quarter: 2016Q1

REPORT INFORMATION
  Report Type: Spontaneous
  Country: DE (occurrence: None)
  Receive Date: 20160202
  Receipt Date: 20160202
  Transmission Date: 20160526
  Serious: Yes (Hospitalization)
  Sender: FDA-Public Use
  Company Number: None

PATIENT
  Sex: Male
  Weight: 59 kg

DRUGS (9)
  1. DACLATASVIR 60 MG BMS [Suspect]
     Active Substance: DACLATASVIR
     Indication: HEPATITIS C
     Route: 048
     Dates: start: 20150324, end: 20150610
  2. FERROSANOL [Concomitant]
     Active Substance: FERROUS GLUCONATE
  3. FRESUBIN [Concomitant]
     Active Substance: AMINO ACIDS\DEXTROSE\ELECTROLYTES NOS\SOYBEAN OIL\VITAMINS
  4. EFFENTORS [Concomitant]
  5. NOVICOL [Concomitant]
  6. FENTANYL. [Concomitant]
     Active Substance: FENTANYL
  7. NOVALGIN [Concomitant]
     Active Substance: METAMIZOLE SODIUM
  8. SOFOSBUVIR 400 MG GILEAD [Suspect]
     Active Substance: SOFOSBUVIR
     Indication: HEPATITIS C
     Route: 048
     Dates: start: 20150324, end: 20150610
  9. CLEXANE [Concomitant]
     Active Substance: ENOXAPARIN SODIUM

REACTIONS (2)
  - Lymphoma [None]
  - Malignant neoplasm progression [None]

NARRATIVE: CASE EVENT DATE: 20150416
